FAERS Safety Report 4899996-3 (Version None)
Quarter: 2006Q1

REPORT INFORMATION
  Report Type: 
  Country: None (occurrence: None)
  Receive Date: 20060201
  Receipt Date: 20060120
  Transmission Date: 20060701
  Serious: Yes (Hospitalization, Other)
  Sender: FDA-Public Use
  Company Number: 2005088910

PATIENT
  Age: 92 Year
  Sex: Female
  Weight: 56.6996 kg

DRUGS (12)
  1. CELEBREX [Suspect]
     Indication: OSTEOARTHRITIS
     Dosage: 1 IN 1 D, ORAL
     Route: 048
  2. PREDNISONE TAB [Suspect]
     Indication: TEMPORAL ARTERITIS
     Dosage: 60 MG (1 D)
     Dates: start: 20040201
  3. PLETAL [Suspect]
     Indication: PAIN IN EXTREMITY
  4. FOLIC ACID [Concomitant]
  5. NORVASC [Concomitant]
  6. SYNTHROID [Concomitant]
  7. ASPIRIN [Concomitant]
  8. MULTIVITAMIN [Concomitant]
  9. MEMANTINE HCL [Concomitant]
  10. ACIPHEX [Concomitant]
  11. DITROPAN XL [Concomitant]
  12. PREMARIN [Concomitant]

REACTIONS (7)
  - AKINESIA [None]
  - DRUG INEFFECTIVE [None]
  - DYSPHAGIA [None]
  - MALAISE [None]
  - ORAL INTAKE REDUCED [None]
  - PAIN IN EXTREMITY [None]
  - TEMPORAL ARTERITIS [None]
